FAERS Safety Report 6611152-7 (Version None)
Quarter: 2010Q1

REPORT INFORMATION
  Report Type: 
  Country: None (occurrence: None)
  Receive Date: 20100302
  Receipt Date: 20100302
  Transmission Date: 20100710
  Serious: Yes (Hospitalization)
  Sender: FDA-Public Use
  Company Number: None

PATIENT
  Age: 49 Year
  Sex: Male
  Weight: 185.2 kg

DRUGS (11)
  1. COUMADIN [Suspect]
     Indication: AORTIC DISSECTION
     Dosage: 7MG MTWFS PO CHRONIC
     Route: 048
  2. COUMADIN [Suspect]
     Indication: DEEP VEIN THROMBOSIS
     Dosage: 7MG MTWFS PO CHRONIC
     Route: 048
  3. COUMADIN [Suspect]
     Indication: PULMONARY EMBOLISM
     Dosage: 7MG MTWFS PO CHRONIC
     Route: 048
  4. AMIODARONE HCL [Concomitant]
  5. ASPIRIN [Concomitant]
  6. BUMEX [Concomitant]
  7. LANTUS [Concomitant]
  8. SYNTHROID [Concomitant]
  9. LISINOPRIL [Concomitant]
  10. METOPROLOL TARTRATE [Concomitant]
  11. PRILOSEC [Concomitant]

REACTIONS (2)
  - ANGIOPATHY [None]
  - EPISTAXIS [None]
